FAERS Safety Report 25681079 (Version 1)
Quarter: 2025Q3

REPORT INFORMATION
  Report Type: Other
  Country: CA (occurrence: CA)
  Receive Date: 20250814
  Receipt Date: 20250814
  Transmission Date: 20251021
  Serious: Yes (Disabling)
  Sender: APOTEX
  Company Number: CA-PGRTD-E2B_07977460

PATIENT
  Age: 53 Year
  Sex: Female
  Weight: 58.97 kg

DRUGS (1)
  1. TIMOLOL [Suspect]
     Active Substance: TIMOLOL
     Indication: Intraocular pressure test
     Dosage: 1 EVERY 1 DAYS
     Route: 047

REACTIONS (10)
  - Eye pruritus [Unknown]
  - Asthenopia [Unknown]
  - Periorbital swelling [Unknown]
  - Loss of personal independence in daily activities [Unknown]
  - Ocular discomfort [Unknown]
  - Product availability issue [Unknown]
  - Product quality issue [Unknown]
  - Eye pain [Unknown]
  - Eye irritation [Unknown]
  - Dry eye [Unknown]
